FAERS Safety Report 25317641 (Version 1)
Quarter: 2025Q2

REPORT INFORMATION
  Report Type: Spontaneous
  Country: IT (occurrence: IT)
  Receive Date: 20250515
  Receipt Date: 20250515
  Transmission Date: 20250716
  Serious: No
  Sender: ALKEM
  Company Number: IT-ALKEM LABORATORIES LIMITED-IT-ALKEM-2024-16401

PATIENT
  Age: 70 Year
  Sex: Female

DRUGS (4)
  1. AZATHIOPRINE [Suspect]
     Active Substance: AZATHIOPRINE
     Indication: Myasthenia gravis
     Route: 065
  2. AZATHIOPRINE [Suspect]
     Active Substance: AZATHIOPRINE
     Route: 065
  3. PYRIDOSTIGMINE BROMIDE [Suspect]
     Active Substance: PYRIDOSTIGMINE BROMIDE
     Indication: Myasthenia gravis
     Route: 065
  4. PYRIDOSTIGMINE BROMIDE [Suspect]
     Active Substance: PYRIDOSTIGMINE BROMIDE
     Route: 065

REACTIONS (29)
  - Blood pressure increased [Unknown]
  - Hair growth abnormal [Unknown]
  - Bowel movement irregularity [Unknown]
  - Cough [Unknown]
  - Confusional state [Unknown]
  - Decreased appetite [Unknown]
  - Discomfort [Unknown]
  - Eye pain [Unknown]
  - Dyspnoea [Unknown]
  - Eye irritation [Unknown]
  - Feeling abnormal [Unknown]
  - Irritability [Unknown]
  - Depression [Unknown]
  - Pain [Unknown]
  - Micturition disorder [Unknown]
  - Palpitations [Unknown]
  - Stomatitis [Unknown]
  - Swelling [Unknown]
  - Vision blurred [Unknown]
  - Weight increased [Unknown]
  - Rash [Unknown]
  - Pyrexia [Unknown]
  - Arthralgia [Unknown]
  - Abdominal pain [Unknown]
  - Genital herpes [Unknown]
  - Malaise [Unknown]
  - Conjunctivitis [Unknown]
  - Vomiting [Unknown]
  - Abdominal pain upper [Unknown]
